FAERS Safety Report 5941886-9 (Version None)
Quarter: 2008Q4

REPORT INFORMATION
  Report Type: 
  Country: None (occurrence: None)
  Receive Date: 20081031
  Receipt Date: 20081024
  Transmission Date: 20090506
  Serious: Yes (Other)
  Sender: FDA-Public Use
  Company Number: 2008SP018079

PATIENT
  Age: 82 Year
  Sex: Male
  Weight: 81.6475 kg

DRUGS (7)
  1. MIRALAX [Suspect]
     Dosage: 17 GM;QD;PO
     Route: 048
     Dates: start: 20080601, end: 20080830
  2. AUGMENTIN '125' [Concomitant]
  3. ALBUTEROL [Concomitant]
  4. FLOVENT [Concomitant]
  5. SEREVENT [Concomitant]
  6. NASONEX [Concomitant]
  7. SODIUM CHLORIDE [Concomitant]

REACTIONS (8)
  - ANOREXIA [None]
  - ASTHENIA [None]
  - DIARRHOEA [None]
  - DIZZINESS [None]
  - FAECES DISCOLOURED [None]
  - INCORRECT DRUG ADMINISTRATION DURATION [None]
  - MALAISE [None]
  - WEIGHT DECREASED [None]
